FAERS Safety Report 19141690 (Version 2)
Quarter: 2021Q2

REPORT INFORMATION
  Report Type: Report from Study
  Country: AT (occurrence: AT)
  Receive Date: 20210415
  Receipt Date: 20210421
  Transmission Date: 20210717
  Serious: Yes (Hospitalization, Other)
  Sender: FDA-Public Use
  Company Number: AT-BRISTOL-MYERS SQUIBB COMPANY-BMS-2021-035075

PATIENT
  Age: 78 Year
  Sex: Female

DRUGS (4)
  1. RITUXIMAB. [Suspect]
     Active Substance: RITUXIMAB
     Indication: B-CELL LYMPHOMA
     Dosage: 525 MILLIGRAM, 1XCYCLE
     Route: 042
     Dates: start: 20201006, end: 20210201
  2. GEMCITABINE HYDROCHLORIDE. [Suspect]
     Active Substance: GEMCITABINE HYDROCHLORIDE
     Indication: B-CELL LYMPHOMA
     Dosage: 1400 MILLIGRAM, 1XCYCLE
     Route: 042
     Dates: start: 20201007, end: 20210201
  3. OXALIPLATIN. [Suspect]
     Active Substance: OXALIPLATIN
     Indication: B-CELL LYMPHOMA
     Dosage: 140 MILLIGRAM, 1XCYCLE
     Route: 042
     Dates: start: 20201007, end: 20210201
  4. PEGFILGRASTIM [Suspect]
     Active Substance: PEGFILGRASTIM
     Indication: B-CELL LYMPHOMA
     Dosage: 6 MILLIGRAM, 1XCYCLE
     Route: 058
     Dates: start: 20201025, end: 20210203

REACTIONS (2)
  - Jaundice [Unknown]
  - Renal failure [Unknown]

NARRATIVE: CASE EVENT DATE: 20210408
